FAERS Safety Report 6960788-2 (Version None)
Quarter: 2010Q3

REPORT INFORMATION
  Report Type: 
  Country: None (occurrence: None)
  Receive Date: 20100830
  Receipt Date: 20100813
  Transmission Date: 20110219
  Serious: Yes (Death)
  Sender: FDA-Public Use
  Company Number: AE 2010-207

PATIENT
  Age: 54 Year
  Sex: Male

DRUGS (10)
  1. FAZACLO ODT [Suspect]
     Dosage: 200 MG DAILY PO
     Route: 048
     Dates: start: 20091011, end: 20100618
  2. BENZTROPINE MESYLATE [Concomitant]
  3. LORAZEPAM [Concomitant]
  4. PROLIXIN [Concomitant]
  5. AMITRIPTYLINE HYDROCHLORIDE [Concomitant]
  6. BENADRYL [Concomitant]
  7. ZOLOFT [Concomitant]
  8. ZANTAC [Concomitant]
  9. PROPRANOLOL [Concomitant]
  10. ABILIFY [Concomitant]

REACTIONS (1)
  - DEATH [None]
